FAERS Safety Report 8136420-1 (Version None)
Quarter: 2012Q1

REPORT INFORMATION
  Report Type: 
  Country: None (occurrence: None)
  Receive Date: 20120214
  Receipt Date: 20120202
  Transmission Date: 20120608
  Serious: Yes (Other)
  Sender: FDA-Public Use
  Company Number: US-TEVA-320721USA

PATIENT
  Sex: Female

DRUGS (1)
  1. LETROZOLE [Suspect]
     Indication: BREAST CANCER
     Dates: start: 20110801

REACTIONS (2)
  - HAEMOLYTIC ANAEMIA [None]
  - BLOOD BILIRUBIN INCREASED [None]
